FAERS Safety Report 25086724 (Version 1)
Quarter: 2025Q1

REPORT INFORMATION
  Report Type: Spontaneous
  Country: DE (occurrence: DE)
  Receive Date: 20250318
  Receipt Date: 20250318
  Transmission Date: 20250409
  Serious: Yes (Other)
  Sender: JOHNSON AND JOHNSON
  Company Number: DE-BAYER-2025A033883

PATIENT
  Age: 81 Year
  Sex: Male

DRUGS (4)
  1. XARELTO [Suspect]
     Active Substance: RIVAROXABAN
     Indication: Pulmonary embolism
     Route: 048
     Dates: start: 201111
  2. XARELTO [Suspect]
     Active Substance: RIVAROXABAN
     Dates: start: 20231209
  3. XARELTO [Suspect]
     Active Substance: RIVAROXABAN
     Indication: Pulmonary embolism
     Route: 048
  4. ASPIRIN [Concomitant]
     Active Substance: ASPIRIN
     Indication: Product used for unknown indication

REACTIONS (9)
  - Liposarcoma [Unknown]
  - Haemorrhage [Unknown]
  - Epistaxis [Unknown]
  - Paralysis [Unknown]
  - Liposarcoma [Unknown]
  - Liposarcoma [Unknown]
  - Blood test abnormal [Not Recovered/Not Resolved]
  - Product dose omission issue [Unknown]
  - Vaccination site pain [Unknown]

NARRATIVE: CASE EVENT DATE: 20240101
